FAERS Safety Report 11793236 (Version 1)
Quarter: 2015Q4

REPORT INFORMATION
  Report Type: Spontaneous
  Country: US (occurrence: None)
  Receive Date: 20151201
  Receipt Date: 20151201
  Transmission Date: 20160305
  Serious: Yes (Hospitalization)
  Sender: FDA-Public Use
  Company Number: None

PATIENT
  Sex: Female

DRUGS (1)
  1. FORTEO [Suspect]
     Active Substance: TERIPARATIDE
     Indication: OSTEOPOROSIS
     Route: 058
     Dates: start: 201404

REACTIONS (6)
  - Fall [None]
  - Blood count abnormal [None]
  - Pancreatitis chronic [None]
  - Weight decreased [None]
  - Fibromyalgia [None]
  - Cerebrovascular accident [None]
